FAERS Safety Report 5416393-2 (Version None)
Quarter: 2007Q3

REPORT INFORMATION
  Report Type: 
  Country: None (occurrence: None)
  Receive Date: 20070816
  Receipt Date: 20070813
  Transmission Date: 20080115
  Serious: Yes (Other)
  Sender: FDA-Public Use
  Company Number: PHEH2007US10921

PATIENT
  Age: 78 Year
  Sex: Female

DRUGS (3)
  1. EXFORGE [Suspect]
     Dosage: UNK, UNK
     Dates: start: 20070701
  2. ASPIRIN [Concomitant]
     Dosage: UNK, UNK
  3. LOTREL [Suspect]
     Dosage: UNK, UNK

REACTIONS (3)
  - COUGH [None]
  - DYSPNOEA [None]
  - THROAT TIGHTNESS [None]
